FAERS Safety Report 12370765 (Version 2)
Quarter: 2016Q3

REPORT INFORMATION
  Report Type: Spontaneous
  Country: ES (occurrence: ES)
  Receive Date: 20160516
  Receipt Date: 20160825
  Transmission Date: 20161109
  Serious: Yes (Other)
  Sender: FDA-Public Use
  Company Number: ES-ROCHE-1756494

PATIENT
  Sex: Female

DRUGS (2)
  1. TAXOL [Suspect]
     Active Substance: PACLITAXEL
     Indication: PRODUCT USED FOR UNKNOWN INDICATION
     Route: 065
     Dates: start: 20160224, end: 20160406
  2. HERCEPTIN [Suspect]
     Active Substance: TRASTUZUMAB
     Indication: PRODUCT USED FOR UNKNOWN INDICATION
     Route: 058
     Dates: start: 20160224, end: 20160406

REACTIONS (1)
  - Pneumonitis chemical [Recovered/Resolved]
